FAERS Safety Report 7946425-9 (Version None)
Quarter: 2011Q4

REPORT INFORMATION
  Report Type: 
  Country: None (occurrence: None)
  Receive Date: 20111122
  Receipt Date: 20111115
  Transmission Date: 20120403
  Serious: Yes (Other)
  Sender: FDA-Public Use
  Company Number: CLOF-1000095

PATIENT
  Age: 70 Year
  Sex: Male

DRUGS (1)
  1. EVOLTRA (CLOFARABINE) SOLUTION FOR INFUSION [Suspect]
     Indication: ACUTE MYELOID LEUKAEMIA
     Dosage: 1 DF, QDX5
     Dates: start: 20071220, end: 20071224

REACTIONS (5)
  - DEVICE RELATED INFECTION [None]
  - STAPHYLOCOCCAL INFECTION [None]
  - NEUTROPENIA [None]
  - THROMBOCYTOPENIA [None]
  - CLOSTRIDIUM TEST POSITIVE [None]
